FAERS Safety Report 9113790 (Version 1)
Quarter: 2013Q1

REPORT INFORMATION
  Report Type: Other
  Country: DE (occurrence: DE)
  Receive Date: 20130208
  Receipt Date: 20130208
  Transmission Date: 20140127
  Serious: Yes (Hospitalization)
  Sender: FDA-Public Use
  Company Number: DE-BRISTOL-MYERS SQUIBB COMPANY-17322520

PATIENT
  Age: 58 Year
  Sex: Female

DRUGS (3)
  1. CISPLATIN [Suspect]
     Indication: ADENOCARCINOMA
  2. PEMETREXED DISODIUM [Suspect]
     Indication: ADENOCARCINOMA
     Dosage: 1DF= 500MG/M SUP (2)
  3. PREDNISOLONE [Suspect]

REACTIONS (3)
  - Toxic epidermal necrolysis [Recovering/Resolving]
  - Staphylococcal sepsis [Recovering/Resolving]
  - Neutropenia [Recovering/Resolving]
